FAERS Safety Report 24356918 (Version 2)
Quarter: 2024Q3

REPORT INFORMATION
  Report Type: Spontaneous
  Country: US (occurrence: US)
  Receive Date: 20240924
  Receipt Date: 20240926
  Transmission Date: 20241016
  Serious: Yes (Other)
  Sender: BAYER
  Company Number: US-BAYER-2024A135547

PATIENT

DRUGS (1)
  1. AFRIN ALLERGY SINUS NASAL [Suspect]
     Active Substance: OXYMETAZOLINE HYDROCHLORIDE
     Dosage: UNK
     Dates: end: 20240820

REACTIONS (4)
  - Drug dependence [Unknown]
  - Dyspnoea [Not Recovered/Not Resolved]
  - Headache [None]
  - Nasal congestion [Not Recovered/Not Resolved]
